FAERS Safety Report 6695540-9 (Version None)
Quarter: 2010Q2

REPORT INFORMATION
  Report Type: 
  Country: None (occurrence: None)
  Receive Date: 20100426
  Receipt Date: 20100413
  Transmission Date: 20101027
  Serious: Yes (Hospitalization)
  Sender: FDA-Public Use
  Company Number: US-BIOGENIDEC-2010BI003036

PATIENT
  Age: 52 Year
  Sex: Female

DRUGS (24)
  1. TYSABRI [Suspect]
     Indication: MULTIPLE SCLEROSIS
     Route: 042
     Dates: start: 20080201, end: 20081020
  2. TYSABRI [Suspect]
     Route: 042
     Dates: start: 20090612, end: 20090807
  3. TYLENOL-500 [Concomitant]
     Indication: PAIN
     Route: 048
     Dates: start: 20100127
  4. TYLENOL-500 [Concomitant]
     Indication: PYREXIA
     Route: 048
     Dates: start: 20100127
  5. DULCOLAX [Concomitant]
     Indication: CONSTIPATION
     Route: 054
     Dates: start: 20100127, end: 20100217
  6. DULCOLAX [Concomitant]
     Route: 048
     Dates: start: 20100127
  7. COLACE [Concomitant]
     Indication: CONSTIPATION
     Dates: start: 20100127
  8. LACTULOSE [Concomitant]
     Indication: CONSTIPATION
     Route: 048
     Dates: start: 20100127
  9. REGLAN [Concomitant]
     Indication: NAUSEA
     Route: 048
     Dates: start: 20100127
  10. REGLAN [Concomitant]
     Indication: VOMITING
     Route: 048
     Dates: start: 20100127
  11. MIRALAX [Concomitant]
     Indication: CONSTIPATION
     Route: 048
     Dates: start: 20100127
  12. CYMBALTA [Concomitant]
     Indication: DRUG USE FOR UNKNOWN INDICATION
  13. NITROFURANTOIN [Concomitant]
     Indication: PROPHYLAXIS URINARY TRACT INFECTION
     Route: 048
  14. NEURONTIN [Concomitant]
     Indication: DRUG USE FOR UNKNOWN INDICATION
  15. NEURONTIN [Concomitant]
  16. FISH OIL [Concomitant]
     Indication: SUPPLEMENTATION THERAPY
  17. VITAMIN C [Concomitant]
     Indication: SUPPLEMENTATION THERAPY
  18. BACLOFEN [Concomitant]
     Indication: RESTLESS LEGS SYNDROME
     Route: 048
  19. BACLOFEN [Concomitant]
  20. KLONOPIN [Concomitant]
     Indication: DRUG USE FOR UNKNOWN INDICATION
     Route: 048
  21. KLONOPIN [Concomitant]
  22. VITAMIN D [Concomitant]
     Indication: SUPPLEMENTATION THERAPY
  23. MULTI-VITAMIN [Concomitant]
     Indication: SUPPLEMENTATION THERAPY
  24. TRAMADOL HCL [Concomitant]
     Indication: DRUG USE FOR UNKNOWN INDICATION

REACTIONS (3)
  - ATRIAL FIBRILLATION [None]
  - COLONIC OBSTRUCTION [None]
  - GENITAL HERPES [None]
